FAERS Safety Report 6390982-3 (Version None)
Quarter: 2009Q4

REPORT INFORMATION
  Report Type: 
  Country: None (occurrence: None)
  Receive Date: 20091006
  Receipt Date: 20090924
  Transmission Date: 20100525
  Serious: Yes (Hospitalization, Other)
  Sender: FDA-Public Use
  Company Number: US-ELI_LILLY_AND_COMPANY-US200909006047

PATIENT
  Sex: Female

DRUGS (10)
  1. CYMBALTA [Suspect]
     Indication: DEPRESSION
     Dosage: 90 MG, DAILY (1/D)
     Route: 065
  2. METHADONE HYDROCHLORIDE [Concomitant]
     Dosage: 15 MG, DAILY (1/D)
     Route: 065
     Dates: start: 20090914
  3. METHADONE HYDROCHLORIDE [Concomitant]
     Dosage: 20 MG, DAILY (1/D)
     Route: 065
     Dates: start: 20090915
  4. METHADONE HYDROCHLORIDE [Concomitant]
     Dosage: 25 MG, DAILY (1/D)
     Route: 065
     Dates: start: 20090916
  5. METHADONE HYDROCHLORIDE [Concomitant]
     Dosage: 30 MG, DAILY (1/D)
     Route: 065
     Dates: start: 20090917
  6. METHADONE HYDROCHLORIDE [Concomitant]
     Dosage: 40 MG, DAILY (1/D)
     Route: 065
     Dates: start: 20090918
  7. METHADONE HYDROCHLORIDE [Concomitant]
     Dosage: 50 MG, DAILY (1/D)
     Route: 065
     Dates: start: 20090920
  8. TRAMADOL HCL [Concomitant]
     Dosage: UNK, UNKNOWN
     Route: 065
  9. BUSPAR [Concomitant]
     Indication: ANXIETY
     Dosage: UNK, UNKNOWN
     Route: 065
  10. ATIVAN [Concomitant]
     Indication: ANXIETY
     Dosage: UNK, UNKNOWN
     Route: 065

REACTIONS (13)
  - ABNORMAL BEHAVIOUR [None]
  - ANGER [None]
  - DRUG DEPENDENCE [None]
  - DRUG INTERACTION [None]
  - FEAR OF DEATH [None]
  - HEART RATE INCREASED [None]
  - HYPERHIDROSIS [None]
  - IRRITABILITY [None]
  - MEMORY IMPAIRMENT [None]
  - MENTAL DISORDER [None]
  - MIOSIS [None]
  - SUICIDAL IDEATION [None]
  - TREMOR [None]
